FAERS Safety Report 5081003-3 (Version None)
Quarter: 2006Q3

REPORT INFORMATION
  Report Type: 
  Country: None (occurrence: None)
  Receive Date: 20060810
  Receipt Date: 20060808
  Transmission Date: 20061208
  Serious: Yes (Hospitalization, Other)
  Sender: FDA-Public Use
  Company Number: HQWYE160308AUG06

PATIENT
  Age: 67 Year
  Sex: Female

DRUGS (1)
  1. CEFIXIME CHEWABLE [Suspect]
     Indication: SEPSIS
     Dosage: ORAL
     Route: 048
     Dates: start: 20060510, end: 20060517

REACTIONS (1)
  - DRUG ERUPTION [None]
